FAERS Safety Report 5228146-9 (Version None)
Quarter: 2007Q1

REPORT INFORMATION
  Report Type: 
  Country: None (occurrence: None)
  Receive Date: 20070130
  Receipt Date: 20070118
  Transmission Date: 20070707
  Serious: Yes (Other)
  Sender: FDA-Public Use
  Company Number: 2007303638

PATIENT
  Age: 14 Year
  Sex: Female
  Weight: 99.7913 kg

DRUGS (2)
  1. PURELL UNSPECIFIED (ETHYL ALCOHOL) [Suspect]
     Dosage: INHALATION
     Route: 055
     Dates: start: 20061101
  2. CELEXA [Concomitant]

REACTIONS (2)
  - DRUG ABUSER [None]
  - INTENTIONAL DRUG MISUSE [None]
